FAERS Safety Report 13172485 (Version 1)
Quarter: 2017Q1

REPORT INFORMATION
  Report Type: Spontaneous
  Country: AU (occurrence: None)
  Receive Date: 20170131
  Receipt Date: 20170131
  Transmission Date: 20170428
  Serious: No
  Sender: FDA-Public Use
  Company Number: AU-BEH-2016074016

PATIENT
  Age: 30 Year
  Sex: Male

DRUGS (1)
  1. TIGER SNAKE ANTIVENOM [Suspect]
     Active Substance: TIGER SNAKE (NOTECHIS SCUTATUS) IMMUNE GLOBULIN ANTIVENIN (EQUINE)
     Indication: SNAKE BITE

REACTIONS (14)
  - Renal tubular necrosis [None]
  - Headache [None]
  - Sinus bradycardia [None]
  - Nausea [None]
  - Vomiting [None]
  - Disseminated intravascular coagulation [None]
  - Thrombotic microangiopathy [None]
  - Anuria [None]
  - Lymphadenopathy [None]
  - International normalised ratio increased [None]
  - Peripheral swelling [None]
  - Acute abdomen [None]
  - Acute kidney injury [None]
  - Dialysis [None]
